FAERS Safety Report 5327501-6 (Version None)
Quarter: 2007Q2

REPORT INFORMATION
  Report Type: 
  Country: None (occurrence: None)
  Receive Date: 20070517
  Receipt Date: 20061016
  Transmission Date: 20071010
  Serious: Yes (Hospitalization)
  Sender: FDA-Public Use
  Company Number: US-JNJFOC-20061005699

PATIENT
  Age: 19 Month
  Sex: Male
  Weight: 14 kg

DRUGS (1)
  1. TRAMADOL HCL [Suspect]
     Indication: ACCIDENTAL EXPOSURE

REACTIONS (2)
  - ACCIDENTAL EXPOSURE [None]
  - DECREASED ACTIVITY [None]
